FAERS Safety Report 5807481-7 (Version None)
Quarter: 2008Q3

REPORT INFORMATION
  Report Type: 
  Country: None (occurrence: None)
  Receive Date: 20080711
  Receipt Date: 20020715
  Transmission Date: 20090109
  Serious: Yes (Life-Threatening)
  Sender: FDA-Public Use
  Company Number: US-BAXTER-2007BH009110

PATIENT
  Age: 76 Year
  Sex: Female

DRUGS (1)
  1. POTASSIUM CHLORIDE [Suspect]
     Indication: BLOOD POTASSIUM DECREASED
     Dosage: DOSE UNIT:UNKNOWN
     Route: 042
     Dates: start: 20020616, end: 20020616

REACTIONS (2)
  - CARDIAC ARREST [None]
  - INCORRECT DRUG ADMINISTRATION RATE [None]
